FAERS Safety Report 23030621 (Version 1)
Quarter: 2023Q4

REPORT INFORMATION
  Report Type: Report from Study
  Country: EG (occurrence: EG)
  Receive Date: 20231005
  Receipt Date: 20231005
  Transmission Date: 20240110
  Serious: Yes (Other)
  Sender: FDA-Public Use
  Company Number: EG-002147023-NVSC2023EG212177

PATIENT
  Age: 32 Year
  Sex: Male

DRUGS (1)
  1. COSENTYX [Suspect]
     Active Substance: SECUKINUMAB
     Indication: Ankylosing spondylitis
     Dosage: 2 DOSAGE FORM (2 PENS EVERY WEEK FOR ONE MONTH AS A LOADING DOSE THEN 2 PENS EVERY MONTH AS A MAINTE
     Route: 058
     Dates: start: 201611

REACTIONS (4)
  - Oedema [Recovered/Resolved]
  - Swelling face [Recovered/Resolved]
  - Mycobacterium tuberculosis complex test positive [Unknown]
  - Off label use [Recovered/Resolved]

NARRATIVE: CASE EVENT DATE: 20161101
